FAERS Safety Report 6431177-4 (Version None)
Quarter: 2009Q4

REPORT INFORMATION
  Report Type: 
  Country: None (occurrence: None)
  Receive Date: 20091105
  Receipt Date: 20091105
  Transmission Date: 20100525
  Serious: Yes (Other)
  Sender: FDA-Public Use
  Company Number: None

PATIENT
  Age: 30 Year
  Sex: Female
  Weight: 79.3795 kg

DRUGS (1)
  1. PLAN B [Suspect]
     Indication: CONTRACEPTION
     Dosage: 1 TABLET 12 HOURS APART PO
     Route: 048
     Dates: start: 20090817, end: 20090818

REACTIONS (2)
  - ABORTION SPONTANEOUS [None]
  - PREGNANCY [None]
